FAERS Safety Report 9969383 (Version 5)
Quarter: 2014Q2

REPORT INFORMATION
  Report Type: Spontaneous
  Country: IE (occurrence: IE)
  Receive Date: 20140306
  Receipt Date: 20140627
  Transmission Date: 20141212
  Serious: Yes (Death, Other)
  Sender: FDA-Public Use
  Company Number: IE-AMGEN-IRLSP2014014607

PATIENT
  Sex: Female

DRUGS (13)
  1. PROLIA [Suspect]
     Indication: OSTEOPOROSIS
     Dosage: 60 MG, Q6MO
     Route: 058
     Dates: start: 20130129, end: 201309
  2. PROLIA [Suspect]
     Route: 058
  3. LOSEC                              /00661201/ [Concomitant]
     Dosage: 20 MG, QD
     Route: 065
  4. CAPRIN [Concomitant]
     Dosage: 75 MG, QD
     Route: 065
  5. ZOCOR [Concomitant]
     Dosage: 10 MG, NOCTE
     Route: 065
  6. CYCLOKAPRON [Concomitant]
     Dosage: 500 MG, QD
     Route: 065
     Dates: start: 2013
  7. FAMVIR                             /01226201/ [Concomitant]
     Dosage: 250 MG, UNK
     Route: 065
     Dates: start: 2013
  8. DIFLUCAN [Concomitant]
     Dosage: 50 MG, QD
     Route: 065
     Dates: start: 2013
  9. IMODIUM [Concomitant]
     Dosage: UNK UNK, AS NECESSARY
     Route: 065
     Dates: start: 201308
  10. SEPTRIN [Concomitant]
     Dosage: 960 MG, UNK
     Route: 065
     Dates: start: 201308
  11. ZOFRAN                             /00955301/ [Concomitant]
     Dosage: 8 MG, 3 TIMES/WK
     Route: 065
  12. ERYTHROPOIETIN [Concomitant]
     Dosage: UNK
     Route: 065
     Dates: start: 2013
  13. AZACITIDINE [Concomitant]
     Dosage: UNK
     Route: 058
     Dates: start: 2013

REACTIONS (7)
  - Myelodysplastic syndrome [Fatal]
  - Bacterial sepsis [Fatal]
  - Neutrophil count decreased [Fatal]
  - Pancytopenia [Unknown]
  - Microcytosis [Unknown]
  - Vitamin B12 decreased [Unknown]
  - Haemorrhage intracranial [Fatal]
